FAERS Safety Report 23438979 (Version 1)
Quarter: 2024Q1

REPORT INFORMATION
  Report Type: Spontaneous
  Country: IE (occurrence: IE)
  Receive Date: 20240124
  Receipt Date: 20240124
  Transmission Date: 20240410
  Serious: Yes (Death, Hospitalization)
  Sender: FDA-Public Use
  Company Number: IE-NORDICGR-054825

PATIENT
  Sex: Female

DRUGS (2)
  1. METHOTREXATE [Suspect]
     Active Substance: METHOTREXATE
     Indication: Psoriasis
     Route: 065
  2. DELTACORTRIL [Concomitant]
     Active Substance: PREDNISOLONE
     Indication: Psoriasis
     Route: 048

REACTIONS (1)
  - Brain neoplasm [Fatal]
